FAERS Safety Report 19042057 (Version 1)
Quarter: 2021Q1

REPORT INFORMATION
  Report Type: Spontaneous
  Country: US (occurrence: US)
  Receive Date: 20210323
  Receipt Date: 20210323
  Transmission Date: 20210420
  Serious: No
  Sender: FDA-Public Use
  Company Number: US-STRONGBRIDGE BIOPHARMA-2021-STR-000086

PATIENT
  Sex: Male

DRUGS (1)
  1. KEVEYIS [Suspect]
     Active Substance: DICHLORPHENAMIDE
     Indication: FAMILIAL PERIODIC PARALYSIS
     Dosage: 50MG IN THE MORNING AND 100MG IN THE EVENING
     Route: 048

REACTIONS (3)
  - White blood cell count increased [Unknown]
  - Red blood cell count increased [Unknown]
  - Thyroid hormones increased [Unknown]
